FAERS Safety Report 16985039 (Version 1)
Quarter: 2019Q4

REPORT INFORMATION
  Report Type: Spontaneous
  Country: US (occurrence: US)
  Receive Date: 20191031
  Receipt Date: 20191031
  Transmission Date: 20200122
  Serious: Yes (Hospitalization)
  Sender: FDA-Public Use
  Company Number: None

PATIENT
  Age: 17 Year
  Sex: Female

DRUGS (2)
  1. TETRABENAZINE. [Suspect]
     Active Substance: TETRABENAZINE
     Indication: CEREBELLAR ATAXIA
     Route: 048
     Dates: start: 20170413
  2. MULTIVITAMIN DRO PLS ZINC [Concomitant]

REACTIONS (2)
  - Therapy cessation [None]
  - Neoplasm malignant [None]
